FAERS Safety Report 22163197 (Version 1)
Quarter: 2023Q2

REPORT INFORMATION
  Report Type: Spontaneous
  Country: CN (occurrence: None)
  Receive Date: 20230401
  Receipt Date: 20230401
  Transmission Date: 20230722
  Serious: Yes (Disabling, Other)
  Sender: FDA-Public Use
  Company Number: CN-ROCHE-3320470

PATIENT
  Age: 48 Year
  Sex: Female

DRUGS (8)
  1. MABTHERA [Suspect]
     Active Substance: RITUXIMAB
     Indication: Chronic lymphocytic leukaemia
     Dosage: DF= VIAL
     Route: 041
     Dates: start: 20230311, end: 20230311
  2. CYCLOPHOSPHAMIDE [Suspect]
     Active Substance: CYCLOPHOSPHAMIDE
     Indication: Chronic lymphocytic leukaemia
     Dosage: DF= VIAL
     Route: 041
     Dates: start: 20230311, end: 20230311
  3. PIRARUBICIN HYDROCHLORIDE [Suspect]
     Active Substance: PIRARUBICIN HYDROCHLORIDE
     Indication: Chronic lymphocytic leukaemia
     Dosage: DF= VIAL
     Route: 041
     Dates: start: 20230311, end: 20230311
  4. VINDESINE SULFATE [Suspect]
     Active Substance: VINDESINE SULFATE
     Indication: Chronic lymphocytic leukaemia
     Dosage: DF= VIAL
     Route: 042
     Dates: start: 20230311, end: 20230311
  5. SODIUM CHLORIDE [Concomitant]
     Active Substance: SODIUM CHLORIDE
     Dosage: DF= VIAL
     Route: 041
     Dates: start: 20230311, end: 20230311
  6. SODIUM CHLORIDE [Concomitant]
     Active Substance: SODIUM CHLORIDE
     Dosage: DF= VIAL
     Route: 041
     Dates: start: 20230311, end: 20230311
  7. SODIUM CHLORIDE [Concomitant]
     Active Substance: SODIUM CHLORIDE
     Dosage: DF= VIAL
     Route: 042
     Dates: start: 20230311, end: 20230311
  8. DEXTROSE [Concomitant]
     Active Substance: DEXTROSE\DEXTROSE MONOHYDRATE
     Dosage: DF= VIAL
     Route: 041
     Dates: start: 20230311, end: 20230311

REACTIONS (2)
  - Full blood count decreased [Not Recovered/Not Resolved]
  - Myelosuppression [Not Recovered/Not Resolved]

NARRATIVE: CASE EVENT DATE: 20230319
